FAERS Safety Report 5937507-1 (Version None)
Quarter: 2008Q4

REPORT INFORMATION
  Report Type: 
  Country: None (occurrence: None)
  Receive Date: 20081029
  Receipt Date: 20081022
  Transmission Date: 20090506
  Serious: Yes (Death)
  Sender: FDA-Public Use
  Company Number: 2008BI025285

PATIENT
  Sex: Female

DRUGS (3)
  1. AVONEX [Suspect]
     Indication: MULTIPLE SCLEROSIS
     Dosage: 30 UG;QW;IM
     Route: 030
     Dates: start: 20040101, end: 20060101
  2. COPAXONE (CON) [Concomitant]
  3. COPAXONE (PREV) [Concomitant]

REACTIONS (1)
  - LUNG NEOPLASM MALIGNANT [None]
